FAERS Safety Report 9790714 (Version 3)
Quarter: 2014Q1

REPORT INFORMATION
  Report Type: Spontaneous
  Country: JP (occurrence: JP)
  Receive Date: 20131231
  Receipt Date: 20140305
  Transmission Date: 20141002
  Serious: Yes (Hospitalization)
  Sender: FDA-Public Use
  Company Number: JP-GLAXOSMITHKLINE-B0956565A

PATIENT
  Age: 71 Year
  Sex: Female

DRUGS (3)
  1. HYCAMTIN [Suspect]
     Indication: OVARIAN CANCER RECURRENT
     Dosage: 1MGML PER DAY
     Route: 042
     Dates: start: 20130611, end: 20130615
  2. GRANISETRON [Concomitant]
     Dosage: 3MGD PER DAY
     Dates: start: 20130611, end: 20130614
  3. DECADRON [Concomitant]
     Dosage: 4MGD PER DAY
     Dates: start: 20130611, end: 20130614

REACTIONS (10)
  - Nausea [Unknown]
  - Decreased appetite [Unknown]
  - Fatigue [Unknown]
  - White blood cell count decreased [Recovered/Resolved]
  - Neutrophil count decreased [Unknown]
  - Red blood cell count decreased [Recovering/Resolving]
  - Anaemia [Unknown]
  - Platelet count decreased [Unknown]
  - Febrile neutropenia [Unknown]
  - Herpes zoster [Recovered/Resolved]
